FAERS Safety Report 4275140-0 (Version None)
Quarter: 2004Q1

REPORT INFORMATION
  Report Type: 
  Country: None (occurrence: None)
  Receive Date: 20040116
  Receipt Date: 20040108
  Transmission Date: 20041129
  Serious: Yes (Hospitalization, Disabling, Other)
  Sender: FDA-Public Use
  Company Number: 2003172263IE

PATIENT
  Age: 15 Year
  Sex: Male

DRUGS (1)
  1. GENOTROPIN [Suspect]
     Indication: PRADER-WILLI SYNDROME
     Dosage: 2.4 MG, WEEKLY
     Dates: start: 20020829, end: 20030811

REACTIONS (2)
  - ABNORMAL BEHAVIOUR [None]
  - INSOMNIA [None]
